FAERS Safety Report 19436225 (Version 2)
Quarter: 2021Q2

REPORT INFORMATION
  Report Type: Spontaneous
  Country: DE (occurrence: DE)
  Receive Date: 20210618
  Receipt Date: 20210630
  Transmission Date: 20210717
  Serious: Yes (Hospitalization, Other)
  Sender: FDA-Public Use
  Company Number: DE-TEVA-2021-DE-1922828

PATIENT
  Age: 27 Year
  Sex: Female
  Weight: 100 kg

DRUGS (6)
  1. OLANZAPIN [Concomitant]
     Active Substance: OLANZAPINE
     Dosage: 5 MILLIGRAM DAILY; 0?0?5MG LONG TERM
     Route: 048
  2. CLOZAPIN [Suspect]
     Active Substance: CLOZAPINE
     Dosage: 300 MILLIGRAM DAILY; 150 MG ? 0? 150 MG
     Route: 048
     Dates: start: 2020, end: 20210209
  3. CLOZAPIN [Suspect]
     Active Substance: CLOZAPINE
     Dosage: UNIT DOSE :500 MG ,SUICIDE ATTEMPT WITH A SINGLE 500 MG INSTEAD OF A DAILY DOSE OF 300 MG.
     Dates: start: 20210202
  4. CHLORPROTHIXENE [Concomitant]
     Active Substance: CHLORPROTHIXENE
     Dosage: RELIEVER MEDICATION NEW AND AT SHORT NOTICE
     Route: 048
  5. LAMOTRIGINE. [Concomitant]
     Active Substance: LAMOTRIGINE
     Dosage: 300 MILLIGRAM DAILY; UNIT DOSE :150 MG ,150 MG ? 0?150 MG ,LONG TERM
     Route: 048
  6. PIPAMPERON [Concomitant]
     Active Substance: PIPAMPERONE HYDROCHLORIDE
     Dosage: RELIEVER MEDICATION NEW AND AT SHORT NOTICE
     Route: 048

REACTIONS (2)
  - Flank pain [Recovering/Resolving]
  - Acute kidney injury [Recovering/Resolving]

NARRATIVE: CASE EVENT DATE: 20210209
